FAERS Safety Report 9675601 (Version 1)
Quarter: 2013Q4

REPORT INFORMATION
  Report Type: Spontaneous
  Country: US (occurrence: US)
  Receive Date: 20131107
  Receipt Date: 20131107
  Transmission Date: 20140711
  Serious: Yes (Other)
  Sender: FDA-Public Use
  Company Number: US-ABBVIE-13P-163-1165606-00

PATIENT
  Sex: Female
  Weight: 74.91 kg

DRUGS (5)
  1. SYNTHROID [Suspect]
     Indication: BLOOD THYROID STIMULATING HORMONE DECREASED
  2. PROPRANOLOL [Concomitant]
     Indication: HYPERTENSION
  3. LOSARTAN [Concomitant]
     Indication: HYPERTENSION
  4. HYDROCHLOROTHIAZIDE [Concomitant]
     Indication: HYPERTENSION
  5. POTASSIUM [Concomitant]
     Indication: HYPERTENSION

REACTIONS (6)
  - Cardiac flutter [Unknown]
  - Unevaluable event [Unknown]
  - Syncope [Unknown]
  - Dizziness [Unknown]
  - Adverse drug reaction [Unknown]
  - Drug ineffective [Unknown]
